FAERS Safety Report 7376743-7 (Version None)
Quarter: 2011Q1

REPORT INFORMATION
  Report Type: 
  Country: None (occurrence: None)
  Receive Date: 20110325
  Receipt Date: 20110302
  Transmission Date: 20110831
  Serious: No
  Sender: FDA-Public Use
  Company Number: US-B.I. PHARMACEUTICALS,INC./RIDGEFIELD-2011-BP-03610BP

PATIENT
  Sex: Male
  Weight: 96.62 kg

DRUGS (9)
  1. TRICOR [Concomitant]
     Indication: BLOOD CHOLESTEROL INCREASED
     Dosage: 145 MG
  2. LEXAPRO [Concomitant]
     Dosage: 10 MG
  3. PRADAXA [Suspect]
     Indication: ATRIAL FIBRILLATION
     Dosage: 150 MG
     Route: 048
     Dates: start: 20110121, end: 20110128
  4. GABAPENTIN [Concomitant]
     Indication: JOINT INJURY
     Dosage: 600 MG
  5. NITROGLYCERIN SPRAY [Concomitant]
     Indication: CHEST PAIN
     Dosage: PRN
  6. SIMVASTATIN [Concomitant]
     Indication: BLOOD CHOLESTEROL INCREASED
     Dosage: 80 MG
  7. METOPROLOL [Concomitant]
     Indication: HYPERTENSION
     Dosage: 25 MG
  8. DIOVAN [Concomitant]
     Indication: HYPERTENSION
     Dosage: 320 MG
  9. ENALAPRIL MALEATE [Concomitant]
     Dosage: 40 MG

REACTIONS (7)
  - MUSCULOSKELETAL PAIN [None]
  - DYSPHAGIA [None]
  - ADVERSE REACTION [None]
  - CHEST DISCOMFORT [None]
  - CHEST PAIN [None]
  - ABDOMINAL PAIN UPPER [None]
  - HAEMATOCHEZIA [None]
